FAERS Safety Report 7540810-5 (Version None)
Quarter: 2011Q2

REPORT INFORMATION
  Report Type: 
  Country: None (occurrence: None)
  Receive Date: 20110610
  Receipt Date: 20110607
  Transmission Date: 20111010
  Serious: Yes (Hospitalization, Other)
  Sender: FDA-Public Use
  Company Number: FR-PFIZER INC-2011072400

PATIENT
  Age: 81 Year
  Sex: Male

DRUGS (10)
  1. RAMIPRIL [Concomitant]
  2. ATORVASTATIN [Suspect]
     Dosage: 1 DF, 1X/DAY
     Route: 048
  3. ZOLPIDEM [Suspect]
     Dosage: UNK
     Route: 048
  4. AMIODARONE HCL [Suspect]
     Dosage: 200 MG, 1X/DAY
     Route: 048
  5. ASPIRIN [Concomitant]
  6. AMLODIPINE [Concomitant]
  7. PREVISCAN [Suspect]
     Dosage: 15 MG, 1X/DAY
     Route: 048
     Dates: start: 20100201, end: 20100421
  8. FUROSEMIDE [Suspect]
     Dosage: 40 MG, 1X/DAY
     Route: 048
  9. ALLOPURINOL [Suspect]
     Dosage: 200 MG, 1X/DAY
     Route: 048
     Dates: start: 20100201
  10. NITRODERM [Concomitant]

REACTIONS (5)
  - TUBULOINTERSTITIAL NEPHRITIS [None]
  - ATRIAL FIBRILLATION [None]
  - GOUT [None]
  - RENAL FAILURE ACUTE [None]
  - NEPHROPATHY [None]
